FAERS Safety Report 18473822 (Version 3)
Quarter: 2021Q3

REPORT INFORMATION
  Report Type: Spontaneous
  Country: US (occurrence: US)
  Receive Date: 20201106
  Receipt Date: 20210827
  Transmission Date: 20211014
  Serious: Yes (Other)
  Sender: FDA-Public Use
  Company Number: US-PFIZER INC-2019253589

PATIENT
  Age: 70 Year
  Sex: Female
  Weight: 104.33 kg

DRUGS (5)
  1. GABAPENTIN. [Concomitant]
     Active Substance: GABAPENTIN
     Indication: PAIN
     Dosage: 600 MG, 3X/DAY
     Route: 048
  2. LYRICA [Suspect]
     Active Substance: PREGABALIN
     Indication: TYPE 2 DIABETES MELLITUS
     Dosage: 150 MG, 3X/DAY
     Route: 048
  3. LYRICA [Suspect]
     Active Substance: PREGABALIN
     Indication: PAIN
     Dosage: 100 MG, 3X/DAY
     Route: 048
  4. LYRICA [Suspect]
     Active Substance: PREGABALIN
     Indication: POLYNEUROPATHY
     Dosage: 150 MG, 3X/DAY (100 MG CAP AND 50 MG CAPSULE, EACH THREE TIMES A DAY)
     Route: 048
     Dates: start: 20191126
  5. LYRICA [Suspect]
     Active Substance: PREGABALIN
     Indication: CHRONIC KIDNEY DISEASE
     Dosage: 50 MG, 3X/DAY/TAKE 1 CAPSULE (50 MG TOTAL) BY MOUTH 3 (THREE) TIMES DAILY
     Route: 048

REACTIONS (4)
  - Intentional product misuse [Unknown]
  - Memory impairment [Unknown]
  - Gait disturbance [Unknown]
  - Cerebrovascular accident [Unknown]

NARRATIVE: CASE EVENT DATE: 201704
